FAERS Safety Report 21951455 (Version 2)
Quarter: 2023Q1

REPORT INFORMATION
  Report Type: Spontaneous
  Country: US (occurrence: US)
  Receive Date: 20230203
  Receipt Date: 20230207
  Transmission Date: 20230417
  Serious: Yes (Other)
  Sender: FDA-Public Use
  Company Number: US-SA-SAC20230201001483

PATIENT
  Sex: Female
  Weight: 111 kg

DRUGS (1)
  1. AUBAGIO [Suspect]
     Active Substance: TERIFLUNOMIDE
     Indication: Multiple sclerosis
     Dosage: 14 MG, QD
     Route: 048

REACTIONS (9)
  - Pneumonia [Unknown]
  - Influenza like illness [Unknown]
  - Psychotic disorder [Unknown]
  - Depressed mood [Unknown]
  - Hepatomegaly [Unknown]
  - Hepatic steatosis [Unknown]
  - Dry eye [Not Recovered/Not Resolved]
  - COVID-19 [Unknown]
  - Alopecia [Unknown]

NARRATIVE: CASE EVENT DATE: 20211201
